FAERS Safety Report 4724150-5 (Version None)
Quarter: 2005Q3

REPORT INFORMATION
  Report Type: 
  Country: None (occurrence: None)
  Receive Date: 20050722
  Receipt Date: 20050711
  Transmission Date: 20060218
  Serious: Yes (Other)
  Sender: FDA-Public Use
  Company Number: DE-2005-010133

PATIENT
  Age: 49 Year
  Sex: Male
  Weight: 74 kg

DRUGS (10)
  1. MAGNEVIST [Suspect]
     Indication: NUCLEAR MAGNETIC RESONANCE IMAGING
     Dosage: 15 ML, 1 DOSE, INTRAVENOUS
     Route: 042
     Dates: start: 20050607, end: 20050607
  2. ERYTHROPOIETIN HUMAN (ERYTHROPOIETIN HUMAN) [Concomitant]
  3. FERLECIT (FERRIC SODIUM GLUCONATE COMPLEX) [Concomitant]
  4. CALCIUM ACETATE (CALCIUM ACETATE) [Concomitant]
  5. LISINOPRIL [Concomitant]
  6. OMEPRAZOLE [Concomitant]
  7. FUROSEMIDE [Concomitant]
  8. RENAGEL [Concomitant]
  9. MIMPARA [Concomitant]
  10. RESTEX (LEVODOPA, BENSERAZIDE HYDROCHLORIDE) [Concomitant]

REACTIONS (7)
  - C-REACTIVE PROTEIN INCREASED [None]
  - CHILLS [None]
  - DYSPNOEA [None]
  - LUNG DISORDER [None]
  - NAUSEA [None]
  - PAIN [None]
  - PYREXIA [None]
